FAERS Safety Report 6527501-4 (Version None)
Quarter: 2010Q1

REPORT INFORMATION
  Report Type: 
  Country: None (occurrence: None)
  Receive Date: 20100105
  Receipt Date: 20091222
  Transmission Date: 20100710
  Serious: Yes (Life-Threatening, Hospitalization)
  Sender: FDA-Public Use
  Company Number: RO-MYLANLABS-2009S1021815

PATIENT
  Age: 23 Year
  Sex: Female

DRUGS (2)
  1. NIFEDIPINE [Suspect]
     Indication: SUICIDE ATTEMPT
     Route: 048
  2. PARACETAMOL [Suspect]
     Indication: SUICIDE ATTEMPT
     Route: 048

REACTIONS (10)
  - CYANOSIS [None]
  - GASTROINTESTINAL SOUNDS ABNORMAL [None]
  - HYPOTENSION [None]
  - OVERDOSE [None]
  - PALLOR [None]
  - PANCREATITIS ACUTE [None]
  - RENAL FAILURE [None]
  - RESPIRATORY DISTRESS [None]
  - SINUS TACHYCARDIA [None]
  - TACHYPNOEA [None]
